FAERS Safety Report 7054150-4 (Version None)
Quarter: 2010Q4

REPORT INFORMATION
  Report Type: 
  Country: None (occurrence: None)
  Receive Date: 20101015
  Receipt Date: 20101001
  Transmission Date: 20110411
  Serious: Yes (Hospitalization)
  Sender: FDA-Public Use
  Company Number: TCI2010A03855

PATIENT
  Age: 85 Year
  Sex: Male

DRUGS (6)
  1. ACTOS [Suspect]
     Indication: DIABETES MELLITUS
     Dosage: 15 MG (15 MG, 1 IN 1 D), PER ORAL
     Route: 048
     Dates: end: 20100914
  2. BASEN OD (VOGLIBOSE) [Suspect]
     Dosage: PER ORAL
     Route: 048
     Dates: end: 20100914
  3. NORVASC OD (AMLODIPINE BESILATE) [Concomitant]
  4. AMARYL [Concomitant]
  5. ASPIRIN [Concomitant]
  6. DIGOXIN [Concomitant]

REACTIONS (2)
  - CONVULSION [None]
  - MUSCLE TWITCHING [None]
